FAERS Safety Report 8920405 (Version 1)
Quarter: 2012Q4

REPORT INFORMATION
  Report Type: Report from Study
  Country: TR (occurrence: TR)
  Receive Date: 20121122
  Receipt Date: 20121122
  Transmission Date: 20130627
  Serious: Yes (Other)
  Sender: FDA-Public Use
  Company Number: TR-US-EMD SERONO, INC.-7177102

PATIENT
  Sex: Male
  Weight: 60 kg

DRUGS (4)
  1. REBIF [Suspect]
     Indication: RELAPSING-REMITTING MULTIPLE SCLEROSIS
     Route: 058
     Dates: start: 201201, end: 20121109
  2. INSULIN [Suspect]
     Indication: DIABETES MELLITUS
     Route: 058
     Dates: start: 2010
  3. INSULIN NPH [Suspect]
     Indication: DIABETES MELLITUS
     Route: 058
     Dates: start: 2010
  4. B12-VITAMIN [Suspect]
     Indication: VITAMIN B12 DEFICIENCY
     Route: 048
     Dates: start: 201201, end: 20121109

REACTIONS (3)
  - Gamma-glutamyltransferase increased [Unknown]
  - Blood triglycerides increased [Unknown]
  - Hepatitis B surface antibody positive [Unknown]
